FAERS Safety Report 7466140-8 (Version None)
Quarter: 2011Q2

REPORT INFORMATION
  Report Type: 
  Country: None (occurrence: None)
  Receive Date: 20110509
  Receipt Date: 20110428
  Transmission Date: 20111010
  Serious: Yes (Other)
  Sender: FDA-Public Use
  Company Number: JP-JNJFOC-20110401089

PATIENT
  Sex: Female
  Weight: 65 kg

DRUGS (11)
  1. VOLTAREN [Concomitant]
     Indication: RHEUMATOID ARTHRITIS
     Route: 048
  2. PREDNISOLONE [Concomitant]
     Indication: RHEUMATOID ARTHRITIS
     Route: 048
  3. SIMPONI [Suspect]
     Indication: RHEUMATOID ARTHRITIS
     Route: 058
  4. MOHRUS TAPE [Concomitant]
     Indication: RHEUMATOID ARTHRITIS
     Dosage: 2.5 DF
     Route: 003
  5. ALFAROL [Concomitant]
     Indication: PROPHYLAXIS
     Route: 048
  6. LEVOCABASTINE [Concomitant]
     Indication: SEASONAL ALLERGY
     Route: 031
  7. RHEUMATREX [Concomitant]
     Indication: RHEUMATOID ARTHRITIS
     Route: 048
  8. EBASTINE [Concomitant]
     Indication: SEASONAL ALLERGY
     Route: 048
  9. SIMPONI [Suspect]
     Route: 058
  10. FOLIC ACID [Concomitant]
     Indication: PROPHYLAXIS
     Route: 048
  11. MUCOSTA [Concomitant]
     Indication: GASTROINTESTINAL DISORDER THERAPY
     Route: 048

REACTIONS (1)
  - PNEUMONIA BACTERIAL [None]
